FAERS Safety Report 9614957 (Version 2)
Quarter: 2014Q2

REPORT INFORMATION
  Report Type: Spontaneous
  Country: US (occurrence: US)
  Receive Date: 20131011
  Receipt Date: 20140424
  Transmission Date: 20141212
  Serious: No
  Sender: FDA-Public Use
  Company Number: US-PFIZER INC-2013289448

PATIENT
  Age: 72 Year
  Sex: Female

DRUGS (1)
  1. SUTENT [Suspect]
     Indication: NEOPLASM MALIGNANT
     Dosage: 25 MG, UNK
     Dates: start: 201307

REACTIONS (6)
  - Dry mouth [Unknown]
  - Oral pain [Unknown]
  - Glossodynia [Unknown]
  - Herpes zoster [Unknown]
  - Disease progression [Unknown]
  - Neoplasm malignant [Unknown]
